APPROVED DRUG PRODUCT: NABUMETONE
Active Ingredient: NABUMETONE
Strength: 500MG
Dosage Form/Route: TABLET;ORAL
Application: A075189 | Product #001
Applicant: IMPAX LABORATORIES INC
Approved: May 26, 2000 | RLD: No | RS: No | Type: DISCN